FAERS Safety Report 5015610-0 (Version None)
Quarter: 2006Q2

REPORT INFORMATION
  Report Type: 
  Country: None (occurrence: None)
  Receive Date: 20060601
  Receipt Date: 20060523
  Transmission Date: 20061013
  Serious: Yes (Hospitalization)
  Sender: FDA-Public Use
  Company Number: FR-JNJFOC-20060505438

PATIENT
  Age: 83 Year
  Sex: Male

DRUGS (2)
  1. REMICADE [Suspect]
     Dosage: 15TH INFUSION ON 14-FEB-2006
     Route: 042
  2. NOVATREX [Suspect]
     Route: 048

REACTIONS (1)
  - BASAL CELL CARCINOMA [None]
